FAERS Safety Report 5061941-8 (Version None)
Quarter: 2006Q3

REPORT INFORMATION
  Report Type: 
  Country: None (occurrence: None)
  Receive Date: 20060726
  Receipt Date: 19991006
  Transmission Date: 20061208
  Serious: Yes (Other)
  Sender: FDA-Public Use
  Company Number: DE-BRISTOL-MYERS SQUIBB COMPANY-13439815

PATIENT
  Sex: Female

DRUGS (15)
  1. TAXOL [Suspect]
     Indication: BREAST CANCER
     Route: 042
     Dates: start: 19990825, end: 19991229
  2. TAMOXIFEN [Suspect]
     Indication: BREAST CANCER
     Dates: start: 19921201
  3. AMINOGLUTETHIMIDE [Concomitant]
     Indication: BREAST CANCER
     Dates: start: 19950801
  4. CLODRONATE [Concomitant]
     Indication: BREAST CANCER
     Route: 048
     Dates: start: 19990101, end: 19990301
  5. LETROZOLE [Concomitant]
     Indication: BREAST CANCER
     Dates: start: 19990301
  6. DOCETAXEL [Concomitant]
     Indication: BREAST CANCER
     Dates: start: 19990301, end: 19990601
  7. MEGESTAT [Concomitant]
     Indication: CACHEXIA
     Route: 048
     Dates: start: 19991201
  8. IMMUNE GLOBULIN INTRAVENOUS (HUMAN) [Concomitant]
     Indication: HYPOGLOBULINAEMIA
     Dates: start: 19990801
  9. CIPROFLOXACIN [Concomitant]
     Indication: INFECTION
     Dates: start: 19990801
  10. IBUPROFEN [Concomitant]
     Dates: start: 19991201
  11. LANZOR [Concomitant]
     Indication: GASTRITIS
     Dates: start: 19991201
  12. HEPARIN [Concomitant]
     Indication: VARICOSE VEIN
  13. THYROXINE [Concomitant]
     Indication: GOITRE
     Dates: start: 19990401
  14. ANTIHISTAMINE NOS [Concomitant]
     Indication: CONJUNCTIVITIS ALLERGIC
     Route: 048
     Dates: start: 19990801
  15. MEDROXYPROGESTERONE ACETATE [Concomitant]
     Indication: BREAST CANCER
     Route: 048
     Dates: start: 19990101, end: 19990301

REACTIONS (20)
  - CACHEXIA [None]
  - CHOLELITHIASIS [None]
  - CONJUNCTIVITIS ALLERGIC [None]
  - DECREASED IMMUNE RESPONSIVENESS [None]
  - DYSPHONIA [None]
  - GASTRITIS [None]
  - GASTROENTERITIS [None]
  - GOITRE [None]
  - METASTASES TO BONE [None]
  - METASTASES TO LIVER [None]
  - METASTASES TO LUNG [None]
  - MIGRAINE [None]
  - NEPHROLITHIASIS [None]
  - ONYCHOLYSIS [None]
  - OSTEOPOROSIS [None]
  - PANCREATITIS [None]
  - PANCREATITIS ACUTE [None]
  - PARONYCHIA [None]
  - VARICOSE VEIN [None]
  - WEIGHT DECREASED [None]
